FAERS Safety Report 9702993 (Version 1)
Quarter: 2013Q4

REPORT INFORMATION
  Report Type: Spontaneous
  Country: US (occurrence: US)
  Receive Date: 20131122
  Receipt Date: 20131122
  Transmission Date: 20140711
  Serious: No
  Sender: FDA-Public Use
  Company Number: US-009507513-1311USA004311

PATIENT
  Sex: Male

DRUGS (2)
  1. NASONEX [Suspect]
     Indication: NASAL CONGESTION
     Dosage: 50 MG, QD
     Route: 045
     Dates: start: 2013, end: 2013
  2. NASONEX [Suspect]
     Indication: RESPIRATION ABNORMAL

REACTIONS (5)
  - Ear infection [Not Recovered/Not Resolved]
  - Bronchitis [Not Recovered/Not Resolved]
  - Drug dose omission [Unknown]
  - Overdose [Unknown]
  - Product quality issue [Unknown]
